FAERS Safety Report 8915099 (Version 2)
Quarter: 2013Q1

REPORT INFORMATION
  Report Type: Spontaneous
  Country: FR (occurrence: FR)
  Receive Date: 20121119
  Receipt Date: 20130116
  Transmission Date: 20140127
  Serious: Yes (Hospitalization)
  Sender: FDA-Public Use
  Company Number: FR-ROCHE-1156455

PATIENT
  Age: 60 Year
  Sex: Female

DRUGS (3)
  1. PEGASYS [Suspect]
     Indication: CHRONIC HEPATITIS C
     Route: 058
     Dates: start: 20120628, end: 20121015
  2. COPEGUS [Suspect]
     Indication: CHRONIC HEPATITIS C
     Route: 048
     Dates: start: 20120628, end: 20121015
  3. DOLIPRANE [Concomitant]
     Route: 048
     Dates: start: 20120131

REACTIONS (3)
  - Cerebral vasoconstriction [Not Recovered/Not Resolved]
  - Headache [Recovered/Resolved]
  - Subarachnoid haemorrhage [Unknown]
